FAERS Safety Report 24040807 (Version 1)
Quarter: 2024Q3

REPORT INFORMATION
  Report Type: Spontaneous
  Country: US (occurrence: None)
  Receive Date: 20240701
  Receipt Date: 20240701
  Transmission Date: 20241016
  Serious: Yes (Disabling)
  Sender: Public
  Company Number: None

PATIENT
  Age: 37 Year
  Sex: Female
  Weight: 51.75 kg

DRUGS (3)
  1. OLANZAPINE [Suspect]
     Active Substance: OLANZAPINE
     Indication: Borderline personality disorder
     Dosage: 30 TABLETS AT BEDTIME ORAL?
     Route: 048
     Dates: start: 20230923, end: 20240501
  2. LAMOTRIGINE [Concomitant]
     Active Substance: LAMOTRIGINE
  3. CLONODINE HCL [Concomitant]

REACTIONS (4)
  - Blood prolactin increased [None]
  - Amenorrhoea [None]
  - Infertility [None]
  - Osteopenia [None]

NARRATIVE: CASE EVENT DATE: 20240501
